FAERS Safety Report 6591448-8 (Version None)
Quarter: 2010Q1

REPORT INFORMATION
  Report Type: 
  Country: None (occurrence: None)
  Receive Date: 20100219
  Receipt Date: 20100208
  Transmission Date: 20100710
  Serious: Yes (Life-Threatening, Hospitalization)
  Sender: FDA-Public Use
  Company Number: US-JNJFOC-20100205603

PATIENT
  Sex: Male
  Weight: 32.5 kg

DRUGS (5)
  1. JUNIOR STRENGTH TYLENOL CHERRY [Suspect]
     Route: 048
  2. JUNIOR STRENGTH TYLENOL CHERRY [Suspect]
     Indication: DRUG USE FOR UNKNOWN INDICATION
     Route: 048
  3. PEG-INTRON [Suspect]
     Indication: CHRONIC HEPATITIS
     Route: 058
  4. REBETOL [Suspect]
     Indication: CHRONIC HEPATITIS
     Route: 048
  5. ACETAMINOPHEN [Suspect]
     Indication: DRUG USE FOR UNKNOWN INDICATION
     Route: 054

REACTIONS (15)
  - ACUTE RESPIRATORY DISTRESS SYNDROME [None]
  - ALTERED STATE OF CONSCIOUSNESS [None]
  - CONVULSION [None]
  - DISSEMINATED INTRAVASCULAR COAGULATION [None]
  - HEADACHE [None]
  - HEPATIC FAILURE [None]
  - MITOCHONDRIAL TOXICITY [None]
  - MULTI-ORGAN FAILURE [None]
  - NEPHROGENIC DIABETES INSIPIDUS [None]
  - PYREXIA [None]
  - RASH MACULO-PAPULAR [None]
  - RENAL FAILURE [None]
  - SHOCK [None]
  - TREMOR [None]
  - VOMITING [None]
